FAERS Safety Report 4735743-3 (Version None)
Quarter: 2005Q3

REPORT INFORMATION
  Report Type: 
  Country: None (occurrence: None)
  Receive Date: 20050801
  Receipt Date: 20050801
  Transmission Date: 20060218
  Serious: No
  Sender: FDA-Public Use
  Company Number: None

PATIENT
  Age: 77 Year
  Sex: Male
  Weight: 87.9978 kg

DRUGS (2)
  1. GATIFLOXACIN [Suspect]
     Indication: URINARY TRACT INFECTION
     Dosage: 400 MG DAILY PO
     Route: 048
     Dates: start: 20050409, end: 20050411
  2. METFORMIN HCL [Suspect]
     Indication: DIABETES MELLITUS
     Dosage: 500 MG PO DAILY
     Route: 048
     Dates: start: 20031219, end: 20050411

REACTIONS (2)
  - HYPOGLYCAEMIA [None]
  - URINARY TRACT INFECTION [None]
